FAERS Safety Report 6472273-5 (Version None)
Quarter: 2009Q4

REPORT INFORMATION
  Report Type: 
  Country: None (occurrence: None)
  Receive Date: 20091203
  Receipt Date: 20091116
  Transmission Date: 20100525
  Serious: Yes (Death, Life-Threatening, Hospitalization)
  Sender: FDA-Public Use
  Company Number: RU-GENENTECH-293443

PATIENT
  Sex: Female

DRUGS (5)
  1. BEVACIZUMAB [Suspect]
     Indication: BREAST CANCER
     Dosage: 840 MG, Q3W
     Route: 042
     Dates: start: 20090528, end: 20091022
  2. TRASTUZUMAB [Suspect]
     Indication: BREAST CANCER
     Dosage: 446 MG, Q3W
     Route: 042
  3. CAPECITABINE [Suspect]
     Indication: BREAST CANCER
     Dosage: 3000 MG, UNK
     Route: 048
     Dates: start: 20090528, end: 20091015
  4. AZITHROMYCIN [Concomitant]
     Indication: PNEUMONIA
     Dosage: 500 MG, UNK
     Dates: start: 20091022, end: 20091026
  5. AMOXICILLIN AND CLAVULANATE POTASSIUM [Concomitant]
     Indication: PNEUMONIA
     Dosage: 2 MG, QD
     Dates: start: 20091022, end: 20091026

REACTIONS (3)
  - CARDIAC FAILURE [None]
  - PNEUMONIA [None]
  - RENAL FAILURE [None]
